FAERS Safety Report 21371558 (Version 1)
Quarter: 2022Q3

REPORT INFORMATION
  Report Type: Spontaneous
  Country: US (occurrence: None)
  Receive Date: 20220922
  Receipt Date: 20220922
  Transmission Date: 20221027
  Serious: Yes (Hospitalization, Other)
  Sender: FDA-Public Use
  Company Number: None

PATIENT
  Age: 77 Year
  Sex: Male

DRUGS (3)
  1. ADEMPAS [Suspect]
     Active Substance: RIOCIGUAT
     Indication: Pulmonary hypertension
     Dosage: FREQUENCY : 3 TIMES A DAY;?
     Route: 048
     Dates: start: 20190213
  2. PLAVIX [Suspect]
     Active Substance: CLOPIDOGREL BISULFATE
  3. WARFARIN [Suspect]
     Active Substance: WARFARIN

REACTIONS (3)
  - Oedema peripheral [None]
  - Oedema [None]
  - Cellulitis [None]

NARRATIVE: CASE EVENT DATE: 20220913
